FAERS Safety Report 4428406-5 (Version None)
Quarter: 2004Q3

REPORT INFORMATION
  Report Type: 
  Country: None (occurrence: None)
  Receive Date: 20040818
  Receipt Date: 20040809
  Transmission Date: 20050211
  Serious: Yes (Hospitalization)
  Sender: FDA-Public Use
  Company Number: 200412975FR

PATIENT
  Age: 58 Year
  Sex: Male

DRUGS (3)
  1. LOVENOX [Suspect]
     Route: 058
     Dates: start: 20040505, end: 20040507
  2. KARDEGIC 160 MG [Suspect]
     Route: 048
     Dates: start: 19930101, end: 20040507
  3. EUPANTOL [Concomitant]
     Route: 048

REACTIONS (5)
  - ACUTE CORONARY SYNDROME [None]
  - BRAIN COMPRESSION [None]
  - CHEST PAIN [None]
  - HAEMATOMA [None]
  - PARAPLEGIA [None]
